FAERS Safety Report 8812953 (Version 3)
Quarter: 2014Q1

REPORT INFORMATION
  Report Type: Spontaneous
  Country: US (occurrence: US)
  Receive Date: 20120927
  Receipt Date: 20140129
  Transmission Date: 20141002
  Serious: Yes (Other)
  Sender: FDA-Public Use
  Company Number: US-ROCHE-784147

PATIENT
  Sex: Male
  Weight: 68.1 kg

DRUGS (10)
  1. ACCUTANE [Suspect]
     Indication: ACNE
     Route: 065
  2. ACCUTANE [Suspect]
     Route: 065
  3. ACCUTANE [Suspect]
     Route: 065
  4. ACCUTANE [Suspect]
     Route: 065
  5. ACCUTANE [Suspect]
     Route: 065
  6. ACCUTANE [Suspect]
     Route: 065
     Dates: start: 200203, end: 200208
  7. ACCUTANE [Suspect]
     Route: 065
  8. ACCUTANE [Suspect]
     Route: 065
  9. ACCUTANE [Suspect]
     Route: 065
     Dates: start: 200503, end: 200505
  10. AMNESTEEM [Suspect]
     Indication: ACNE
     Route: 048
     Dates: start: 20080818

REACTIONS (4)
  - Colitis ulcerative [Unknown]
  - Inflammatory bowel disease [Unknown]
  - Stress [Unknown]
  - Proctitis ulcerative [Unknown]
